FAERS Safety Report 4384621-0 (Version None)
Quarter: 2004Q2

REPORT INFORMATION
  Report Type: 
  Country: None (occurrence: None)
  Receive Date: 20040625
  Receipt Date: 20030721
  Transmission Date: 20050107
  Serious: No
  Sender: FDA-Public Use
  Company Number: US-BRISTOL-MYERS SQUIBB COMPANY-12331575

PATIENT
  Age: 82 Year
  Sex: Male

DRUGS (4)
  1. SINEMET [Suspect]
     Indication: PARKINSON'S DISEASE
     Dosage: 25/100MG TAB ^FOR OVER THE LAST 3 YEARS^
     Route: 048
  2. MEGACE [Concomitant]
  3. DIPROSONE [Concomitant]
     Route: 061
  4. BACTROBAN [Concomitant]
     Route: 061

REACTIONS (2)
  - DROOLING [None]
  - TONGUE BLACK HAIRY [None]
